FAERS Safety Report 16155999 (Version 1)
Quarter: 2019Q2

REPORT INFORMATION
  Report Type: Spontaneous
  Country: SK (occurrence: SK)
  Receive Date: 20190404
  Receipt Date: 20190404
  Transmission Date: 20190711
  Serious: Yes (Hospitalization, Other)
  Sender: FDA-Public Use
  Company Number: SK-ORION CORPORATION ORION PHARMA-19_00005919

PATIENT
  Age: 29 Year
  Sex: Male

DRUGS (8)
  1. CICLOSPORIN [Suspect]
     Active Substance: CYCLOSPORINE
     Indication: PSORIASIS
     Route: 065
  2. ETANERCEPT [Suspect]
     Active Substance: ETANERCEPT
     Indication: PSORIASIS
     Route: 065
     Dates: start: 200805, end: 2009
  3. METHOTREXATE. [Suspect]
     Active Substance: METHOTREXATE
     Indication: PSORIASIS
     Dosage: 7.5 MG, WEEKLY
     Route: 065
  4. EFALIZUMAB [Suspect]
     Active Substance: EFALIZUMAB
     Indication: PSORIASIS
     Route: 065
  5. ACITRETIN. [Suspect]
     Active Substance: ACITRETIN
     Indication: PSORIASIS
     Route: 065
  6. METHYLPREDNISOLONE. [Suspect]
     Active Substance: METHYLPREDNISOLONE
     Indication: PSORIASIS
     Route: 048
     Dates: start: 2013
  7. METHOTREXATE. [Suspect]
     Active Substance: METHOTREXATE
     Dosage: 16 MG, QD
     Route: 048
     Dates: start: 2013
  8. INFLIXIMAB [Suspect]
     Active Substance: INFLIXIMAB
     Indication: PSORIASIS
     Route: 065
     Dates: start: 200701, end: 200805

REACTIONS (12)
  - Cardiac failure acute [Unknown]
  - Erythrodermic psoriasis [Unknown]
  - Hydrothorax [Unknown]
  - Pyrexia [Unknown]
  - Mobility decreased [Unknown]
  - Dyspnoea [Unknown]
  - Progressive multifocal leukoencephalopathy [Unknown]
  - Asthenia [Unknown]
  - Congestive cardiomyopathy [Unknown]
  - Product use issue [Unknown]
  - Cachexia [Unknown]
  - Renal failure [Not Recovered/Not Resolved]

NARRATIVE: CASE EVENT DATE: 2007
